FAERS Safety Report 22030939 (Version 2)
Quarter: 2023Q1

REPORT INFORMATION
  Report Type: Spontaneous
  Country: PT (occurrence: PT)
  Receive Date: 20230223
  Receipt Date: 20230310
  Transmission Date: 20230418
  Serious: Yes (Other)
  Sender: FDA-Public Use
  Company Number: PT-TEVA-2023-PT-2858479

PATIENT
  Age: 43 Year
  Sex: Female

DRUGS (5)
  1. VALPROIC ACID [Suspect]
     Active Substance: VALPROIC ACID
     Indication: Bipolar I disorder
     Dosage: 750 MILLIGRAM DAILY;
     Route: 065
     Dates: end: 201804
  2. VALPROIC ACID [Suspect]
     Active Substance: VALPROIC ACID
     Indication: Bipolar I disorder
     Dosage: 750 MILLIGRAM DAILY;
     Route: 065
     Dates: start: 202007
  3. QUETIAPINE [Suspect]
     Active Substance: QUETIAPINE
     Indication: Bipolar I disorder
     Dosage: 150 MILLIGRAM DAILY;
     Route: 065
  4. LITHIUM CARBONATE [Suspect]
     Active Substance: LITHIUM CARBONATE
     Indication: Bipolar I disorder
     Dosage: 400 MILLIGRAM DAILY;
     Route: 065
     Dates: start: 201804
  5. LITHIUM CARBONATE [Suspect]
     Active Substance: LITHIUM CARBONATE
     Indication: Bipolar I disorder
     Route: 065

REACTIONS (3)
  - Hyposmia [Unknown]
  - Dysgeusia [Unknown]
  - Drug ineffective [Unknown]
